FAERS Safety Report 9869572 (Version 1)
Quarter: 2014Q1

REPORT INFORMATION
  Report Type: Spontaneous
  Country: US (occurrence: US)
  Receive Date: 20140205
  Receipt Date: 20140205
  Transmission Date: 20141002
  Serious: Yes (Other)
  Sender: FDA-Public Use
  Company Number: US-PFIZER INC-2014030048

PATIENT
  Sex: Female

DRUGS (1)
  1. NARDIL [Suspect]
     Dosage: UNK

REACTIONS (3)
  - Loss of consciousness [Unknown]
  - Myalgia [Unknown]
  - Bone pain [Unknown]
